FAERS Safety Report 7071521-0 (Version None)
Quarter: 2010Q4

REPORT INFORMATION
  Report Type: 
  Country: None (occurrence: None)
  Receive Date: 20101029
  Receipt Date: 20091016
  Transmission Date: 20110411
  Serious: No
  Sender: FDA-Public Use
  Company Number: A0807675A

PATIENT
  Age: 67 Year
  Sex: Male

DRUGS (3)
  1. ADVAIR DISKUS 100/50 [Suspect]
     Dosage: 1PUFF TWICE PER DAY
     Route: 055
     Dates: start: 20090824, end: 20090831
  2. ASPIRIN [Concomitant]
  3. GLUCOSAMINE + CHONDROITIN [Concomitant]

REACTIONS (4)
  - DRUG INEFFECTIVE [None]
  - DYSPHONIA [None]
  - OROPHARYNGEAL PAIN [None]
  - PRODUCT QUALITY ISSUE [None]
